FAERS Safety Report 10950507 (Version 3)
Quarter: 2015Q3

REPORT INFORMATION
  Report Type: Spontaneous
  Country: US (occurrence: US)
  Receive Date: 20150324
  Receipt Date: 20150917
  Transmission Date: 20151125
  Serious: Yes (Death, Life-Threatening, Hospitalization, Other)
  Sender: FDA-Public Use
  Company Number: US-009507513-1503USA011449

PATIENT
  Sex: Male
  Weight: 131.52 kg

DRUGS (2)
  1. ONE-A-DAY MENS HEALTH FORMULA [Concomitant]
     Dosage: UNK
     Dates: start: 201207, end: 20130221
  2. JANUMET [Suspect]
     Active Substance: METFORMIN HYDROCHLORIDE\SITAGLIPTIN PHOSPHATE
     Indication: TYPE 2 DIABETES MELLITUS
     Dosage: 50/1000 MG BID
     Route: 048
     Dates: start: 20111104, end: 20121122

REACTIONS (24)
  - Drug ineffective [Unknown]
  - Pulmonary embolism [Unknown]
  - Death [Fatal]
  - Diverticulum [Unknown]
  - Cholelithiasis [Unknown]
  - Pancreatic carcinoma metastatic [Unknown]
  - Gout [Unknown]
  - Tooth loss [Unknown]
  - Metastases to liver [Unknown]
  - Deep vein thrombosis [Unknown]
  - Vertigo [Unknown]
  - Dyspepsia [Unknown]
  - Rectal polyp [Unknown]
  - Migraine [Unknown]
  - Nephrolithiasis [Unknown]
  - Hypertension [Unknown]
  - Drug intolerance [Unknown]
  - Poor dental condition [Unknown]
  - Cholecystectomy [Unknown]
  - Thalamic infarction [Unknown]
  - Cerebral small vessel ischaemic disease [Not Recovered/Not Resolved]
  - Transient ischaemic attack [Unknown]
  - Anxiety [Unknown]
  - Dyslipidaemia [Unknown]

NARRATIVE: CASE EVENT DATE: 201210
